FAERS Safety Report 4731447-1 (Version None)
Quarter: 2005Q3

REPORT INFORMATION
  Report Type: 
  Country: None (occurrence: None)
  Receive Date: 20050802
  Receipt Date: 20050727
  Transmission Date: 20060218
  Serious: Yes (Hospitalization)
  Sender: FDA-Public Use
  Company Number: 2005CG01320

PATIENT
  Age: 51 Year
  Sex: Male

DRUGS (6)
  1. ATACAND [Suspect]
     Route: 048
     Dates: start: 20040101, end: 20050610
  2. QUINAPRIL HYDROCHLORIDE AND HYDROCHLOROTHIAZDE [Suspect]
     Route: 048
     Dates: start: 20040101, end: 20050610
  3. TEMERIT [Suspect]
     Route: 048
     Dates: start: 20050519, end: 20050610
  4. DIAMICRON [Concomitant]
     Route: 048
     Dates: start: 20010101, end: 20050601
  5. TAHOR [Concomitant]
     Route: 048
  6. PLAVIX [Concomitant]
     Route: 048
     Dates: start: 20040101

REACTIONS (5)
  - DIARRHOEA [None]
  - HYPOTENSION [None]
  - MALAISE [None]
  - RENAL FAILURE ACUTE [None]
  - VOMITING [None]
